FAERS Safety Report 8757782 (Version 2)
Quarter: 2013Q1

REPORT INFORMATION
  Report Type: Spontaneous
  Country: BR (occurrence: BR)
  Receive Date: 20120828
  Receipt Date: 20130314
  Transmission Date: 20140127
  Serious: Yes (Hospitalization, Other)
  Sender: FDA-Public Use
  Company Number: PHHY2012BR073814

PATIENT
  Age: 66 Year
  Sex: Female

DRUGS (3)
  1. DIOVAN AMLO FIX [Suspect]
     Indication: HYPERTENSION
     Dosage: 1 DF, (320 MG VALS AND 10 MG AMLO), A DAY
     Route: 048
  2. ALDACTONE [Concomitant]
     Indication: BLOOD PRESSURE ABNORMAL
     Dosage: 1 DF, (25 MG), A DAY
     Route: 048
  3. ATENSINA [Concomitant]
     Indication: BLOOD PRESSURE ABNORMAL
     Dosage: 1 DF, (0.05 MG), DAILY
     Route: 048

REACTIONS (5)
  - Cerebrovascular accident [Recovering/Resolving]
  - Glaucoma [Unknown]
  - Abnormal sensation in eye [Unknown]
  - Cataract [Not Recovered/Not Resolved]
  - Blood glucose increased [Recovering/Resolving]
